FAERS Safety Report 14779756 (Version 17)
Quarter: 2019Q4

REPORT INFORMATION
  Report Type: Report from Study
  Country: US (occurrence: US)
  Receive Date: 20180419
  Receipt Date: 20191004
  Transmission Date: 20200122
  Serious: Yes (Hospitalization)
  Sender: FDA-Public Use
  Company Number: US-EISAI MEDICAL RESEARCH-EC-2018-038011

PATIENT
  Age: 35 Year
  Sex: Female
  Weight: 73 kg

DRUGS (24)
  1. DOCUSATE SODIUM. [Concomitant]
     Active Substance: DOCUSATE SODIUM
  2. BIOTENE NOS [Concomitant]
     Active Substance: CETYLPYRIDINIUM CHLORIDE OR SODIUM FLUORIDE OR SODIUM MONOFLUOROPHOSPHATE OR GLUCOSE OXIDASE\LACTOFERRIN\LACTOPEROXIDASE BOVINE\LYSOZYME
  3. MORPHINE [Concomitant]
     Active Substance: MORPHINE
  4. MULTIVITAMIN [Concomitant]
     Active Substance: VITAMINS
  5. ERIBULIN [Suspect]
     Active Substance: ERIBULIN
     Indication: BREAST CANCER METASTATIC
     Route: 041
     Dates: start: 20180410, end: 20181002
  6. MAG OX [Concomitant]
     Active Substance: MAGNESIUM OXIDE
  7. NARCAN [Concomitant]
     Active Substance: NALOXONE HYDROCHLORIDE
  8. PROCHLORPERAZINE. [Concomitant]
     Active Substance: PROCHLORPERAZINE
  9. LORAZEPAM. [Concomitant]
     Active Substance: LORAZEPAM
  10. GABAPENTIN. [Concomitant]
     Active Substance: GABAPENTIN
  11. ONDANSETRON [Concomitant]
     Active Substance: ONDANSETRON
  12. NYSTATIN. [Concomitant]
     Active Substance: NYSTATIN
  13. MIRALAX [Concomitant]
     Active Substance: POLYETHYLENE GLYCOL 3350
  14. BETADINE [Concomitant]
     Active Substance: POVIDONE-IODINE
  15. ACETAMINOPHEN. [Concomitant]
     Active Substance: ACETAMINOPHEN
  16. MICONAZOLE. [Concomitant]
     Active Substance: MICONAZOLE
  17. ALKALOL [Concomitant]
  18. DOLOPHINE [Concomitant]
     Active Substance: METHADONE HYDROCHLORIDE
  19. VENELEX [Concomitant]
     Active Substance: BALSAM PERU\CASTOR OIL
  20. MAXIPIME [Concomitant]
     Active Substance: CEFEPIME HYDROCHLORIDE
  21. PEMBROLIZUMAB. [Suspect]
     Active Substance: PEMBROLIZUMAB
     Indication: BREAST CANCER METASTATIC
     Route: 041
     Dates: start: 20180410, end: 20180925
  22. HYDROMORPHINE [Concomitant]
     Active Substance: HYDROMORPHONE
  23. SENOKOT [Concomitant]
     Active Substance: SENNOSIDES
  24. MAGIC MOUTHWASH [Concomitant]
     Active Substance: DIPHENHYDRAMINE HYDROCHLORIDE\LIDOCAINE HYDROCHLORIDE\NYSTATIN

REACTIONS (6)
  - Nausea [Recovered/Resolved]
  - Dehydration [Recovered/Resolved]
  - Influenza like illness [Recovered/Resolved]
  - Breast cellulitis [Recovered/Resolved]
  - Vomiting [Recovered/Resolved]
  - Axillary pain [Not Recovered/Not Resolved]

NARRATIVE: CASE EVENT DATE: 20180411
